FAERS Safety Report 5529291-0 (Version None)
Quarter: 2007Q4

REPORT INFORMATION
  Report Type: 
  Country: None (occurrence: None)
  Receive Date: 20071129
  Receipt Date: 20071123
  Transmission Date: 20080405
  Serious: Yes (Hospitalization)
  Sender: FDA-Public Use
  Company Number: AU-ROCHE-506323

PATIENT
  Age: 43 Year
  Sex: Female
  Weight: 68 kg

DRUGS (3)
  1. CAPECITABINE [Suspect]
     Dosage: GIVEN FOR 14 DAYS OF EACH THREE-WEEK-CYCLE. CYCLE 4 WAS ADMINISTERED FROM 22 JUNE 2007 UNTIL 05 JUL+
     Route: 048
     Dates: start: 20070420
  2. BEVACIZUMAB [Suspect]
     Dosage: GIVEN ON DAY ONE OF EACH THREE-WEEK-CYCLE.
     Route: 042
     Dates: start: 20070420
  3. MITOMYCIN [Suspect]
     Dosage: GIVEN ON DAY ONE EVERY SIX WEEKS.
     Route: 042
     Dates: start: 20070420

REACTIONS (4)
  - DIARRHOEA [None]
  - GASTRITIS [None]
  - NAUSEA [None]
  - VOMITING [None]
